FAERS Safety Report 14078540 (Version 2)
Quarter: 2017Q4

REPORT INFORMATION
  Report Type: Report from Study
  Country: BR (occurrence: BR)
  Receive Date: 20171012
  Receipt Date: 20171109
  Transmission Date: 20180321
  Serious: Yes (Other)
  Sender: FDA-Public Use
  Company Number: PHHY2017BR148618

PATIENT
  Sex: Female
  Weight: 108 kg

DRUGS (1)
  1. DIOVAN [Suspect]
     Active Substance: VALSARTAN
     Indication: HYPERTENSION
     Dosage: 160 MG, QD
     Route: 048
     Dates: start: 200807

REACTIONS (9)
  - Swelling [Not Recovered/Not Resolved]
  - Fluid retention [Not Recovered/Not Resolved]
  - Sensation of foreign body [Unknown]
  - Pruritus [Unknown]
  - Blister [Not Recovered/Not Resolved]
  - Dry skin [Unknown]
  - Weight increased [Not Recovered/Not Resolved]
  - Obesity [Recovering/Resolving]
  - Rash [Not Recovered/Not Resolved]
